FAERS Safety Report 24238546 (Version 1)
Quarter: 2024Q3

REPORT INFORMATION
  Report Type: Spontaneous
  Country: US (occurrence: None)
  Receive Date: 20240820
  Receipt Date: 20240820
  Transmission Date: 20241016
  Serious: Yes (Disabling)
  Sender: Public
  Company Number: None

PATIENT
  Age: 80 Year
  Sex: Female
  Weight: 90.72 kg

DRUGS (10)
  1. REPATHA [Suspect]
     Active Substance: EVOLOCUMAB
     Indication: Blood cholesterol increased
     Dosage: INJECTION TWICE A MONTH???STOP TAKING: MAYY 7
     Route: 042
     Dates: start: 202301
  2. AMLODIPINE - VALSARTAN [Concomitant]
  3. ATENOLOL [Concomitant]
     Active Substance: ATENOLOL
  4. FUROSEMIDE [Concomitant]
     Active Substance: FUROSEMIDE
  5. LEVOTHYROXINE [Concomitant]
     Active Substance: LEVOTHYROXINE
  6. LOW DOSE 81 ASPIRIN [Concomitant]
  7. MULTIVATAMIN 50+ [Concomitant]
  8. CALCIUM [Concomitant]
  9. COENZYME Q10 [Concomitant]
     Active Substance: DIETARY SUPPLEMENT\UBIDECARENONE
  10. CRANBERRY SUPPLEMENT [Concomitant]

REACTIONS (5)
  - Muscular weakness [None]
  - Fatigue [None]
  - Rash papular [None]
  - Rash pruritic [None]
  - Blood creatine phosphokinase increased [None]

NARRATIVE: CASE EVENT DATE: 20240101
